FAERS Safety Report 8162057-4 (Version None)
Quarter: 2012Q1

REPORT INFORMATION
  Report Type: 
  Country: None (occurrence: None)
  Receive Date: 20120224
  Receipt Date: 20110715
  Transmission Date: 20120608
  Serious: No
  Sender: FDA-Public Use
  Company Number: US-BRISTOL-MYERS SQUIBB COMPANY-15817786

PATIENT
  Age: 75 Year
  Sex: Male
  Weight: 75 kg

DRUGS (3)
  1. METFORMIN HCL [Suspect]
     Indication: BLOOD GLUCOSE INCREASED
  2. PANTOPRAZOLE [Concomitant]
  3. PLAVIX [Concomitant]

REACTIONS (6)
  - VOMITING [None]
  - CONSTIPATION [None]
  - DIARRHOEA [None]
  - BLOOD GLUCOSE INCREASED [None]
  - WEIGHT DECREASED [None]
  - ABDOMINAL PAIN UPPER [None]
